FAERS Safety Report 6510503-1 (Version None)
Quarter: 2009Q4

REPORT INFORMATION
  Report Type: 
  Country: None (occurrence: None)
  Receive Date: 20091221
  Receipt Date: 20091221
  Transmission Date: 20100525
  Serious: Yes (Hospitalization, Other)
  Sender: FDA-Public Use
  Company Number: None

PATIENT
  Sex: Male
  Weight: 97.7 kg

DRUGS (1)
  1. CLEVIPREX [Suspect]
     Indication: HYPERTENSION
     Dosage: IV
     Route: 042
     Dates: start: 20091215, end: 20091215

REACTIONS (4)
  - INFUSION SITE INDURATION [None]
  - INFUSION SITE PAIN [None]
  - INFUSION SITE PRURITUS [None]
  - INFUSION SITE SWELLING [None]
